FAERS Safety Report 7435657-4 (Version None)
Quarter: 2011Q2

REPORT INFORMATION
  Report Type: 
  Country: None (occurrence: None)
  Receive Date: 20110425
  Receipt Date: 20110422
  Transmission Date: 20111010
  Serious: Yes (Other)
  Sender: FDA-Public Use
  Company Number: US-PFIZER INC-2011088021

PATIENT
  Sex: Male

DRUGS (1)
  1. CHANTIX [Suspect]
     Dosage: 0.5 MG, UNK
     Route: 048
     Dates: start: 20110401, end: 20110421

REACTIONS (4)
  - RASH MACULAR [None]
  - RASH GENERALISED [None]
  - PRURITUS GENERALISED [None]
  - HYPERSENSITIVITY [None]
